FAERS Safety Report 21908084 (Version 1)
Quarter: 2023Q1

REPORT INFORMATION
  Report Type: Spontaneous
  Country: US (occurrence: US)
  Receive Date: 20230125
  Receipt Date: 20230125
  Transmission Date: 20230418
  Serious: Yes (Death, Hospitalization)
  Sender: FDA-Public Use
  Company Number: US-MYLANLABS-2023M1008400

PATIENT
  Age: 40 Year
  Sex: Male

DRUGS (5)
  1. VANCOMYCIN [Suspect]
     Active Substance: VANCOMYCIN
     Indication: Streptococcal endocarditis
     Dosage: 1 GRAM, BID; INTRAVENOUS (NOT SPECIFIED)
     Route: 042
  2. CEFTRIAXONE [Suspect]
     Active Substance: CEFTRIAXONE
     Indication: Streptococcal endocarditis
     Dosage: 2 GRAM, QD; INTRAVENOUS (NOT SPECIFIED)
     Route: 042
  3. VERAPAMIL [Concomitant]
     Active Substance: VERAPAMIL HYDROCHLORIDE
     Indication: Cerebral vasoconstriction
     Dosage: UNK
     Route: 065
  4. NIMODIPINE [Concomitant]
     Active Substance: NIMODIPINE
     Indication: Cerebral vasoconstriction
     Dosage: UNK
     Route: 065
  5. MILRINONE [Concomitant]
     Active Substance: MILRINONE
     Indication: Cerebral vasoconstriction
     Dosage: UNK
     Route: 065

REACTIONS (1)
  - Drug ineffective [Fatal]
